FAERS Safety Report 8785351 (Version 1)
Quarter: 2012Q4

REPORT INFORMATION
  Report Type: Spontaneous
  Country: AU (occurrence: None)
  Receive Date: 20120831
  Receipt Date: 20120831
  Transmission Date: 20130627
  Serious: Yes (Other)
  Sender: FDA-Public Use
  Company Number: 2012POI057300045

PATIENT
  Age: 61 Year
  Sex: Female

DRUGS (2)
  1. VENLAFAXINE [Suspect]
     Route: 048
  2. VENLAFAXINE [Suspect]

REACTIONS (4)
  - Chronic obstructive pulmonary disease [None]
  - Stress cardiomyopathy [None]
  - Electrocardiogram QT prolonged [None]
  - Left ventricular dysfunction [None]
